FAERS Safety Report 21154337 (Version 1)
Quarter: 2022Q3

REPORT INFORMATION
  Report Type: Spontaneous
  Country: IT (occurrence: IT)
  Receive Date: 20220801
  Receipt Date: 20220801
  Transmission Date: 20221026
  Serious: Yes (Hospitalization)
  Sender: FDA-Public Use
  Company Number: None

PATIENT
  Age: 56 Year
  Sex: Female

DRUGS (4)
  1. PIFELTRO [Suspect]
     Active Substance: DORAVIRINE
     Indication: HIV infection
     Dosage: 100 MILLIGRAM, 1 TABLET / DAY = 100 MG
     Route: 048
     Dates: start: 20210910, end: 20210914
  2. DESCOVY [Concomitant]
     Active Substance: EMTRICITABINE\TENOFOVIR ALAFENAMIDE FUMARATE
     Indication: HIV infection
     Dosage: DESCOVY 200/10 - 1 TABLET / DAY = 200 MG OF EMTRICITABINE AND 10 MG OF TENOFOVIR ALAFENAMIDE
     Route: 048
     Dates: start: 20180606
  3. CHOLECALCIFEROL [Concomitant]
     Active Substance: CHOLECALCIFEROL
     Indication: Osteopenia
     Dosage: DIBASE 40 DROPS / WEEK EQUAL TO 10000 IU / SEVEN DAYS
     Route: 048
     Dates: start: 20141121
  4. LEVOTHYROXINE SODIUM [Concomitant]
     Active Substance: LEVOTHYROXINE SODIUM
     Indication: Hypothyroidism
     Dosage: 1 TABLET / DAY = 125 MCG
     Route: 048

REACTIONS (7)
  - Drug intolerance [Recovered/Resolved]
  - Tremor [Recovered/Resolved]
  - Hallucination, visual [Recovered/Resolved]
  - Aphasia [Recovered/Resolved]
  - Dysaesthesia [Recovered/Resolved]
  - Dyspnoea [Recovered/Resolved]
  - Nightmare [Recovered/Resolved]

NARRATIVE: CASE EVENT DATE: 20210914
